FAERS Safety Report 24065746 (Version 1)
Quarter: 2024Q3

REPORT INFORMATION
  Report Type: Spontaneous
  Country: US (occurrence: None)
  Receive Date: 20240708
  Receipt Date: 20240708
  Transmission Date: 20241016
  Serious: Yes (Death)
  Sender: Public
  Company Number: None

PATIENT
  Sex: Male

DRUGS (9)
  1. TALTZ [Suspect]
     Active Substance: IXEKIZUMAB
     Indication: Psoriatic arthropathy
     Dosage: FREQ: INJECT 1 ML UNDER THE SKIN EVERY 28 DAYS
     Route: 058
     Dates: start: 20230803
  2. TALTZ [Suspect]
     Active Substance: IXEKIZUMAB
     Indication: Polyarthritis
  3. ALBUTEROL [Concomitant]
     Active Substance: ALBUTEROL
  4. ACETAMINOPHEN\CODEINE PHOSPHATE [Concomitant]
     Active Substance: ACETAMINOPHEN\CODEINE PHOSPHATE
  5. BETAMETHASON POW VALERATE [Concomitant]
  6. GABAPENTIN [Concomitant]
     Active Substance: GABAPENTIN
  7. MONTELUKAST SODIUM [Concomitant]
     Active Substance: MONTELUKAST SODIUM
  8. PREDNISONE [Concomitant]
     Active Substance: PREDNISONE
  9. ITYVASO [Concomitant]

REACTIONS (1)
  - Death [None]
